FAERS Safety Report 16162301 (Version 1)
Quarter: 2019Q2

REPORT INFORMATION
  Report Type: Spontaneous
  Country: US (occurrence: US)
  Receive Date: 20190404
  Receipt Date: 20190404
  Transmission Date: 20190711
  Serious: Yes (Hospitalization)
  Sender: FDA-Public Use
  Company Number: None

PATIENT
  Age: 33 Year
  Sex: Male
  Weight: 69.75 kg

DRUGS (2)
  1. CLONAZEPAM TEVA/ACTAVIS TABLETS [Suspect]
     Active Substance: CLONAZEPAM
     Indication: ANXIETY
     Route: 048
     Dates: start: 20190301
  2. CLONAZEPAM TEVA/ACTAVIS TABLETS [Suspect]
     Active Substance: CLONAZEPAM
     Indication: PANIC DISORDER
     Route: 048
     Dates: start: 20190301

REACTIONS (3)
  - Product substitution issue [None]
  - Drug ineffective [None]
  - Product complaint [None]

NARRATIVE: CASE EVENT DATE: 20190301
